FAERS Safety Report 25813772 (Version 2)
Quarter: 2025Q4

REPORT INFORMATION
  Report Type: Spontaneous
  Country: BR (occurrence: BR)
  Receive Date: 20250917
  Receipt Date: 20251125
  Transmission Date: 20260119
  Serious: Yes (Other)
  Sender: VERTEX
  Company Number: BR-VERTEX PHARMACEUTICALS-2025-015073

PATIENT
  Age: 16 Year
  Sex: Female

DRUGS (13)
  1. TRIKAFTA [Suspect]
     Active Substance: ELEXACAFTOR\IVACAFTOR\TEZACAFTOR
     Indication: Cystic fibrosis
     Dosage: 2 TABS IN AM , 1 TAB PM
     Dates: start: 20241218, end: 20250110
  2. TRIKAFTA [Suspect]
     Active Substance: ELEXACAFTOR\IVACAFTOR\TEZACAFTOR
     Dosage: ONE TAB IN MORNING
     Dates: start: 20250128
  3. ALBUTEROL [Concomitant]
     Active Substance: ALBUTEROL
  4. SERETIDE [Concomitant]
     Active Substance: FLUTICASONE PROPIONATE\SALMETEROL XINAFOATE
     Dosage: 25/125, 2 SPRAYS, 12 H
  5. SPIRIVA [Concomitant]
     Active Substance: TIOTROPIUM BROMIDE MONOHYDRATE
     Dosage: 2 SPRAYS, QD
  6. NASONEX [Concomitant]
     Active Substance: MOMETASONE FUROATE
     Dosage: 2 SPRAYS,Q12 H
  7. PANTOPRAZOLE [Concomitant]
     Active Substance: PANTOPRAZOLE
     Dosage: 1 TAB (40MG), QD
  8. URSODIOL [Concomitant]
     Active Substance: URSODIOL
     Dosage: 1 TAB (300MG) /Q12H
  9. PANCREATIN [Concomitant]
     Active Substance: PANCRELIPASE
     Dosage: 245,000 IU/DAY
  10. PANCREATIN [Concomitant]
     Active Substance: PANCRELIPASE
     Dosage: 5,390 IU/KG/DAY
  11. DORNASE ALFA [Concomitant]
     Active Substance: DORNASE ALFA
     Dosage: 1 VIAL (2.5 MG/5 ML), Q12H
  12. VITAMIN K [Concomitant]
     Active Substance: PHYTONADIONE
     Indication: International normalised ratio increased
     Dosage: 1 ML15/15 DAYS
  13. TOBRAMYCIN [Concomitant]
     Active Substance: TOBRAMYCIN
     Dosage: 1 VIAL, Q12H

REACTIONS (5)
  - Chronic hepatic failure [Not Recovered/Not Resolved]
  - Blood albumin abnormal [Not Recovered/Not Resolved]
  - Weight increased [Recovering/Resolving]
  - Infective pulmonary exacerbation of cystic fibrosis [Unknown]
  - Thrombocytopenia [Not Recovered/Not Resolved]

NARRATIVE: CASE EVENT DATE: 20241201
